FAERS Safety Report 4592216-9 (Version None)
Quarter: 2005Q1

REPORT INFORMATION
  Report Type: 
  Country: None (occurrence: None)
  Receive Date: 20050228
  Receipt Date: 20050216
  Transmission Date: 20050727
  Serious: Yes (Life-Threatening, Hospitalization)
  Sender: FDA-Public Use
  Company Number: US-JNJFOC-20041003830

PATIENT
  Sex: Male
  Weight: 79.38 kg

DRUGS (17)
  1. REMICADE [Suspect]
     Dosage: SECOND INFUSION
     Route: 042
  2. REMICADE [Suspect]
     Indication: RHEUMATOID ARTHRITIS
     Route: 042
  3. CELEBREX [Concomitant]
     Dosage: AT BREAKFAST AND DINNER
  4. METHOTREXATE [Concomitant]
     Dosage: .07 CC
  5. METHYLPREDNISOLONE [Concomitant]
     Dosage: 1/2 EVERY OTHER DAY
  6. ZOCOR [Concomitant]
  7. REGULAR INSULIN [Concomitant]
     Dosage: 9 U, SLIDING SCALE FOR OTHER MEALS AND BEDTIME (200-250 + 2 U, 251-300 + 3 U, 300 AND ABOVE + 4 U).
  8. ISOPHANE INSULIN [Concomitant]
     Dosage: 26 U AT BREAKFAST, 40 U AT BEDTIME
  9. ADVAIR DISKUS 100/50 [Concomitant]
     Route: 055
  10. ADVAIR DISKUS 100/50 [Concomitant]
     Dosage: 500/50, 1 PUFF TWICE DAILY
     Route: 055
  11. FAMOTIDINE [Concomitant]
  12. NITROQUICK [Concomitant]
     Indication: CHEST PAIN
  13. ISOSORBIDE [Concomitant]
  14. PLAVIX [Concomitant]
  15. ECOTRIN [Concomitant]
  16. LEVOFLOXACIN [Concomitant]
  17. METAMUCIL-2 [Concomitant]

REACTIONS (6)
  - CORONARY ARTERY STENOSIS [None]
  - COUGH [None]
  - DYSPNOEA [None]
  - HYPERLIPIDAEMIA [None]
  - MYOCARDIAL INFARCTION [None]
  - PULMONARY HYPERTENSION [None]
